FAERS Safety Report 5967578-8 (Version None)
Quarter: 2008Q4

REPORT INFORMATION
  Report Type: 
  Country: None (occurrence: None)
  Receive Date: 20081125
  Receipt Date: 20081119
  Transmission Date: 20090506
  Serious: Yes (Other)
  Sender: FDA-Public Use
  Company Number: DE-PFIZER INC-2008098558

PATIENT
  Sex: Female

DRUGS (4)
  1. LYRICA [Suspect]
     Route: 048
     Dates: start: 20080101
  2. CLONID-OPHTAL [Concomitant]
     Route: 047
  3. PILOMANN [Concomitant]
     Route: 047
  4. TRAVATAN [Concomitant]
     Route: 047

REACTIONS (4)
  - BLOOD PRESSURE INCREASED [None]
  - DRUG WITHDRAWAL SYNDROME [None]
  - DYSPNOEA [None]
  - EYE DISORDER [None]
